FAERS Safety Report 4360500-X (Version None)
Quarter: 2004Q2

REPORT INFORMATION
  Report Type: 
  Country: None (occurrence: None)
  Receive Date: 20040514
  Receipt Date: 20040427
  Transmission Date: 20050107
  Serious: Yes (Death)
  Sender: FDA-Public Use
  Company Number: DSA_70268_2004

PATIENT
  Age: 38 Year
  Sex: Female

DRUGS (2)
  1. MORPHINE SULFATE [Suspect]
     Indication: PAIN
     Dosage: 20 MG Q1HR IV
     Route: 042
  2. LORAZEPAM [Suspect]
     Indication: PAIN
     Dosage: 4 MG Q1HR IV
     Route: 042

REACTIONS (6)
  - ABDOMINAL DISTENSION [None]
  - CATHETER RELATED INFECTION [None]
  - CONSTIPATION [None]
  - FEEDING TUBE COMPLICATION [None]
  - ILEUS [None]
  - RESPIRATORY FAILURE [None]
